FAERS Safety Report 25418274 (Version 3)
Quarter: 2025Q3

REPORT INFORMATION
  Report Type: Spontaneous
  Country: US (occurrence: US)
  Receive Date: 20250610
  Receipt Date: 20250701
  Transmission Date: 20251020
  Serious: No
  Sender: SYNDAX
  Company Number: US-SYNDAX PHARMACEUTICALS, INC.-2025US000471

PATIENT
  Sex: Female
  Weight: 102.49 kg

DRUGS (3)
  1. REVUFORJ [Suspect]
     Active Substance: REVUMENIB CITRATE
     Indication: Acute myeloid leukaemia
     Dosage: 160 MILLIGRAM, BID
     Route: 048
     Dates: start: 20250508
  2. REVUFORJ [Suspect]
     Active Substance: REVUMENIB CITRATE
     Dosage: 110 MILLIGRAM, BID
     Route: 048
     Dates: start: 20250508
  3. ACYCLOVIR [Concomitant]
     Active Substance: ACYCLOVIR
     Indication: Product used for unknown indication
     Route: 065

REACTIONS (2)
  - Platelet count decreased [Recovering/Resolving]
  - Fatigue [Unknown]
